FAERS Safety Report 11547118 (Version 3)
Quarter: 2015Q4

REPORT INFORMATION
  Report Type: Spontaneous
  Country: JP (occurrence: JP)
  Receive Date: 20150924
  Receipt Date: 20151217
  Transmission Date: 20160304
  Serious: Yes (Other)
  Sender: FDA-Public Use
  Company Number: PHJP2015JP016297

PATIENT
  Age: 50 Year
  Sex: Male

DRUGS (6)
  1. CARBAMAZEPINE. [Suspect]
     Active Substance: CARBAMAZEPINE
     Indication: MENTAL RETARDATION
  2. PHENYTOIN. [Suspect]
     Active Substance: PHENYTOIN
     Indication: MENTAL RETARDATION
  3. PHENYTOIN. [Suspect]
     Active Substance: PHENYTOIN
     Indication: SEIZURE
     Dosage: UNK
     Route: 048
  4. CARBAMAZEPINE. [Suspect]
     Active Substance: CARBAMAZEPINE
     Indication: SEIZURE
     Dosage: UNK
     Route: 048
  5. PHENOBARBITAL. [Suspect]
     Active Substance: PHENOBARBITAL
     Indication: SEIZURE
     Dosage: UNK
     Route: 048
  6. PHENOBARBITAL. [Suspect]
     Active Substance: PHENOBARBITAL
     Indication: MENTAL RETARDATION

REACTIONS (2)
  - Seizure [Unknown]
  - Hyperprolactinaemia [Unknown]
